FAERS Safety Report 5992909-2 (Version None)
Quarter: 2008Q4

REPORT INFORMATION
  Report Type: 
  Country: None (occurrence: None)
  Receive Date: 20081212
  Receipt Date: 20081208
  Transmission Date: 20090506
  Serious: Yes (Death, Other)
  Sender: FDA-Public Use
  Company Number: FR-WYE-G02735508

PATIENT
  Age: 40 Year
  Sex: Female

DRUGS (1)
  1. EFFEXOR [Suspect]
     Dosage: OVERDOSE AMOUNT = 2500 MG OF VENLAFAXINE, REPORTED AS 50 TABLETS OF EFFEXOR 50 MG STRENGTH
     Route: 048
     Dates: start: 20081101

REACTIONS (5)
  - COMA [None]
  - COMPLETED SUICIDE [None]
  - INTENTIONAL OVERDOSE [None]
  - MALAISE [None]
  - SEROTONIN SYNDROME [None]
